FAERS Safety Report 25421630 (Version 1)
Quarter: 2025Q2

REPORT INFORMATION
  Report Type: Spontaneous
  Country: US (occurrence: US)
  Receive Date: 20250611
  Receipt Date: 20250611
  Transmission Date: 20250717
  Serious: No
  Sender: RECKITT BENCKISER
  Company Number: US-PROD-AS2-212756134-20-25-USA-RB-0004754

PATIENT
  Age: 81 Year
  Sex: Female
  Weight: 54.431 kg

DRUGS (6)
  1. MUCINEX DM [Suspect]
     Active Substance: DEXTROMETHORPHAN HYDROBROMIDE\GUAIFENESIN
     Indication: Product used for unknown indication
     Route: 048
     Dates: start: 20250317
  2. PAXIL [Concomitant]
     Active Substance: PAROXETINE HYDROCHLORIDE
     Indication: Product used for unknown indication
  3. METFORMIN [Concomitant]
     Active Substance: METFORMIN HYDROCHLORIDE
     Indication: Diabetes mellitus
  4. LOSARTAN [Concomitant]
     Active Substance: LOSARTAN
     Indication: Hypertension
  5. PANTOPRAZOLE [Concomitant]
     Active Substance: PANTOPRAZOLE
     Indication: Product used for unknown indication
     Route: 065
  6. SIMVASTATIN [Concomitant]
     Active Substance: SIMVASTATIN
     Indication: Blood cholesterol increased
     Route: 065

REACTIONS (2)
  - Balance disorder [Recovered/Resolved]
  - COVID-19 [Recovering/Resolving]

NARRATIVE: CASE EVENT DATE: 20250317
